FAERS Safety Report 4382603-6 (Version None)
Quarter: 2004Q2

REPORT INFORMATION
  Report Type: 
  Country: None (occurrence: None)
  Receive Date: 20040617
  Receipt Date: 20040607
  Transmission Date: 20050107
  Serious: Yes (Hospitalization)
  Sender: FDA-Public Use
  Company Number: 2004217917FR

PATIENT
  Age: 70 Year
  Sex: Male
  Weight: 68 kg

DRUGS (3)
  1. MEDROL [Suspect]
     Dosage: 500 MG, MONTHLY, ORAL
     Route: 048
     Dates: start: 20030109, end: 20031120
  2. THALIDOMIDE (THALIDOMIDE) [Suspect]
     Dosage: 100 MG, ORAL
     Route: 048
     Dates: start: 20030109, end: 20031120
  3. LYTOS (CLODRONATE DISODIUM) [Suspect]
     Dosage: 520 MG, BID, ORAL
     Route: 048
     Dates: start: 20030708

REACTIONS (2)
  - PARAESTHESIA [None]
  - PERIPHERAL SENSORY NEUROPATHY [None]
